FAERS Safety Report 6746751-5 (Version None)
Quarter: 2010Q2

REPORT INFORMATION
  Report Type: 
  Country: None (occurrence: None)
  Receive Date: 20100528
  Receipt Date: 20090722
  Transmission Date: 20101027
  Serious: No
  Sender: FDA-Public Use
  Company Number: A0799522A

PATIENT
  Sex: Male

DRUGS (3)
  1. VENTOLIN HFA [Suspect]
     Route: 055
  2. FLOVENT [Suspect]
     Route: 055
  3. VERAMYST [Suspect]
     Route: 045

REACTIONS (2)
  - CHEST PAIN [None]
  - DYSPNOEA [None]
